FAERS Safety Report 8265754-5 (Version None)
Quarter: 2012Q2

REPORT INFORMATION
  Report Type: 
  Country: None (occurrence: None)
  Receive Date: 20120404
  Receipt Date: 20120320
  Transmission Date: 20120825
  Serious: Yes (Death)
  Sender: FDA-Public Use
  Company Number: FK201200907

PATIENT
  Age: 63 Year

DRUGS (4)
  1. OXALIPLATIN [Suspect]
     Indication: METASTATIC CARCINOID TUMOUR
  2. FLUOROURACIL [Suspect]
     Indication: METASTATIC CARCINOID TUMOUR
  3. BEVACUZUMAB (BEVACIZUMAB) [Suspect]
     Indication: METASTATIC CARCINOID TUMOUR
  4. LEUCOVORIN CALCIUM [Suspect]
     Indication: METASTATIC CARCINOID TUMOUR

REACTIONS (1)
  - INTESTINAL PERFORATION [None]
